FAERS Safety Report 13529049 (Version 2)
Quarter: 2017Q2

REPORT INFORMATION
  Report Type: Report from Study
  Country: GB (occurrence: CA)
  Receive Date: 20170509
  Receipt Date: 20170614
  Transmission Date: 20170830
  Serious: Yes (Other)
  Sender: FDA-Public Use
  Company Number: CA-ALEXION-A201704741

PATIENT
  Age: 83 Year
  Sex: Male
  Weight: 70 kg

DRUGS (1)
  1. SOLIRIS [Suspect]
     Active Substance: ECULIZUMAB
     Indication: PAROXYSMAL NOCTURNAL HAEMOGLOBINURIA
     Dosage: 600 MG, QW
     Route: 042
     Dates: start: 20170410

REACTIONS (5)
  - Ear pain [Not Recovered/Not Resolved]
  - Gingival swelling [Recovered/Resolved]
  - Eustachian tube disorder [Unknown]
  - Toothache [Recovered/Resolved]
  - Tooth abscess [Recovered/Resolved]

NARRATIVE: CASE EVENT DATE: 20170425
